FAERS Safety Report 8024891 (Version 3)
Quarter: 2015Q3

REPORT INFORMATION
  Report Type: Report from Study
  Country: DE (occurrence: DE)
  Receive Date: 20110707
  Receipt Date: 20150708
  Transmission Date: 20151125
  Serious: Yes (Hospitalization)
  Sender: FDA-Public Use
  Company Number: DE-NOVOPROD-329098

PATIENT
  Age: 9 Year
  Sex: Female
  Weight: 23 kg

DRUGS (3)
  1. INFLANEFRAN [Concomitant]
     Dosage: UNK
     Route: 065
  2. NORDITROPIN [Suspect]
     Active Substance: SOMATROPIN
     Indication: FOETAL GROWTH RESTRICTION
     Dosage: 0.8 MG, QD
     Route: 058
     Dates: start: 20080611
  3. JODID [Concomitant]
     Active Substance: IODINE
     Indication: BLOOD THYROID STIMULATING HORMONE INCREASED
     Dosage: 100 UG, QD
     Route: 065
     Dates: start: 20110606

REACTIONS (1)
  - Retinal detachment [Not Recovered/Not Resolved]

NARRATIVE: CASE EVENT DATE: 20101216
